FAERS Safety Report 5566972-7 (Version None)
Quarter: 2007Q4

REPORT INFORMATION
  Report Type: 
  Country: None (occurrence: None)
  Receive Date: 20071219
  Receipt Date: 20070726
  Transmission Date: 20080405
  Serious: No
  Sender: FDA-Public Use
  Company Number: US-BRISTOL-MYERS SQUIBB COMPANY-13858329

PATIENT
  Age: 82 Year
  Sex: Male
  Weight: 70 kg

DRUGS (4)
  1. PRAVACHOL [Suspect]
  2. ZETIA [Concomitant]
  3. ALTACE [Concomitant]
  4. RHINOCORT [Concomitant]

REACTIONS (1)
  - NIPPLE PAIN [None]
